FAERS Safety Report 13754569 (Version 3)
Quarter: 2019Q1

REPORT INFORMATION
  Report Type: Spontaneous
  Country: FR (occurrence: FR)
  Receive Date: 20170714
  Receipt Date: 20190327
  Transmission Date: 20190417
  Serious: Yes (Death, Hospitalization, Other)
  Sender: FDA-Public Use
  Company Number: FR-ACCORD-053508

PATIENT
  Age: 60 Year
  Sex: Female

DRUGS (2)
  1. CISPLATIN. [Suspect]
     Active Substance: CISPLATIN
     Indication: HYPERTHERMIC CHEMOTHERAPY
     Route: 033
  2. MITOMYCIN. [Suspect]
     Active Substance: MITOMYCIN
     Indication: HYPERTHERMIC CHEMOTHERAPY
     Route: 033

REACTIONS (4)
  - Pancytopenia [Recovered/Resolved]
  - Restrictive pulmonary disease [Fatal]
  - Lung disorder [Recovered/Resolved]
  - Diaphragmatic paralysis [Fatal]
